FAERS Safety Report 16234843 (Version 1)
Quarter: 2019Q2

REPORT INFORMATION
  Report Type: Report from Study
  Country: US (occurrence: US)
  Receive Date: 20190424
  Receipt Date: 20190424
  Transmission Date: 20190711
  Serious: Yes (Life-Threatening, Hospitalization, Other)
  Sender: FDA-Public Use
  Company Number: US-ELI_LILLY_AND_COMPANY-US201904012351

PATIENT
  Sex: Female

DRUGS (3)
  1. TERIPARATIDE [Suspect]
     Active Substance: TERIPARATIDE
     Dosage: UNK
     Route: 065
     Dates: start: 20190413
  2. PROLIA [Concomitant]
     Active Substance: DENOSUMAB
     Indication: PRODUCT USED FOR UNKNOWN INDICATION
  3. TERIPARATIDE [Suspect]
     Active Substance: TERIPARATIDE
     Indication: PRODUCT USED FOR UNKNOWN INDICATION
     Dosage: UNK, UNKNOWN
     Route: 065
     Dates: start: 201407, end: 201512

REACTIONS (20)
  - Stress [Recovered/Resolved]
  - Concussion [Not Recovered/Not Resolved]
  - Fall [Not Recovered/Not Resolved]
  - Myocardial infarction [Recovered/Resolved]
  - Thoracic vertebral fracture [Not Recovered/Not Resolved]
  - Tooth fracture [Not Recovered/Not Resolved]
  - Anal cancer [Unknown]
  - Rib fracture [Recovering/Resolving]
  - Aneurysm [Recovering/Resolving]
  - Lumbar vertebral fracture [Unknown]
  - Pain [Unknown]
  - Incorrect product administration duration [Unknown]
  - Thoracic vertebral fracture [Unknown]
  - Abdominal hernia [Recovered/Resolved]
  - Feeling abnormal [Recovered/Resolved]
  - Back pain [Recovered/Resolved]
  - Memory impairment [Unknown]
  - Weight decreased [Recovered/Resolved]
  - Procedural complication [Recovering/Resolving]
  - Post procedural complication [Recovered/Resolved]

NARRATIVE: CASE EVENT DATE: 201407
